FAERS Safety Report 11244183 (Version 1)
Quarter: 2015Q3

REPORT INFORMATION
  Report Type: Spontaneous
  Country: US (occurrence: None)
  Receive Date: 20150706
  Receipt Date: 20150706
  Transmission Date: 20151125
  Serious: No
  Sender: FDA-Public Use
  Company Number: None

PATIENT

DRUGS (1)
  1. SEVOFLURANE. [Suspect]
     Active Substance: SEVOFLURANE
     Dosage: 6 X 250 ML BOTTLE
     Route: 055

REACTIONS (2)
  - Circumstance or information capable of leading to medication error [None]
  - Product expiration date issue [None]
